FAERS Safety Report 5962196-X (Version None)
Quarter: 2008Q4

REPORT INFORMATION
  Report Type: 
  Country: None (occurrence: None)
  Receive Date: 20081121
  Receipt Date: 20081113
  Transmission Date: 20090506
  Serious: Yes (Hospitalization)
  Sender: FDA-Public Use
  Company Number: PHEH2008US10226

PATIENT
  Sex: Female

DRUGS (2)
  1. DIOVAN [Suspect]
     Dosage: UNK
  2. COUMADIN [Suspect]
     Dosage: UNK

REACTIONS (5)
  - HAEMORRHAGE [None]
  - HERPES ZOSTER [None]
  - MALAISE [None]
  - PNEUMONIA [None]
  - WALKING AID USER [None]
